FAERS Safety Report 17059391 (Version 1)
Quarter: 2019Q4

REPORT INFORMATION
  Report Type: Spontaneous
  Country: FR (occurrence: FR)
  Receive Date: 20191121
  Receipt Date: 20191121
  Transmission Date: 20200122
  Serious: Yes (Other)
  Sender: FDA-Public Use
  Company Number: FR-MYLANLABS-2019M1110971

PATIENT
  Age: 46 Year
  Sex: Female

DRUGS (13)
  1. LAROXYL [Suspect]
     Active Substance: AMITRIPTYLINE HYDROCHLORIDE
     Indication: PAIN IN EXTREMITY
     Dosage: 10 GTT DROPS, QD
     Route: 048
     Dates: start: 20190811
  2. ZAMUDOL LP 200 MG, G?LULE ? LIB?RATION PROLONG?E [Suspect]
     Active Substance: TRAMADOL HYDROCHLORIDE
     Indication: PAIN IN EXTREMITY
     Dosage: 400 MILLIGRAM, QD
     Route: 048
     Dates: start: 20190810, end: 20190811
  3. ACUPAN [Suspect]
     Active Substance: NEFOPAM HYDROCHLORIDE
     Dosage: 80 MILLIGRAM, QD
     Route: 042
     Dates: start: 20190811, end: 20190813
  4. PARACETAMOL [Concomitant]
     Active Substance: ACETAMINOPHEN
     Dosage: UNK,
  5. ACUPAN [Suspect]
     Active Substance: NEFOPAM HYDROCHLORIDE
     Dosage: UNK UNK, PRN
     Route: 042
     Dates: start: 20190809, end: 20190811
  6. ALPRAZOLAM. [Concomitant]
     Active Substance: ALPRAZOLAM
     Dosage: UNK,
  7. ACUPAN [Suspect]
     Active Substance: NEFOPAM HYDROCHLORIDE
     Indication: PAIN IN EXTREMITY
     Dosage: 60 MILLIGRAM, QD
     Route: 042
     Dates: start: 20190813
  8. DIFFU K [Concomitant]
     Active Substance: POTASSIUM CHLORIDE
     Dosage: UNK,
  9. FLUOXETINE MYLAN [Suspect]
     Active Substance: FLUOXETINE HYDROCHLORIDE
     Indication: DEPRESSIVE SYMPTOM
     Dosage: 20 MILLIGRAM, QD
     Route: 048
  10. OROZAMUDOL 50 MG, COMPRIM? ORODISPERSIBLE [Suspect]
     Active Substance: TRAMADOL
     Indication: PAIN IN EXTREMITY
     Dosage: 50 MILLIGRAM, PRN
     Route: 048
     Dates: start: 20190809, end: 20190811
  11. ZAMUDOL LP 150 MG, G?LULE ? LIB?RATION PROLONG?E [Suspect]
     Active Substance: TRAMADOL HYDROCHLORIDE
     Indication: PAIN IN EXTREMITY
     Dosage: 300 MILLIGRAM, QD
     Route: 048
     Dates: start: 20190809, end: 20190810
  12. CORTANCYL [Concomitant]
     Active Substance: PREDNISONE
     Dosage: UNK,
  13. OMEPRAZOLE. [Concomitant]
     Active Substance: OMEPRAZOLE
     Dosage: UNK,

REACTIONS (1)
  - Sjogren^s syndrome [Not Recovered/Not Resolved]

NARRATIVE: CASE EVENT DATE: 201908
